FAERS Safety Report 6016995-9 (Version None)
Quarter: 2008Q4

REPORT INFORMATION
  Report Type: 
  Country: None (occurrence: None)
  Receive Date: 20081223
  Receipt Date: 20081208
  Transmission Date: 20090506
  Serious: Yes (Other)
  Sender: FDA-Public Use
  Company Number: CN-ROCHE-602071

PATIENT

DRUGS (2)
  1. CAPECITABINE [Suspect]
     Indication: GASTRIC CANCER
     Dosage: TAKEN FOR 14 DAYS FOLLOWED BY 7 DAYS BREAK.
     Route: 048
  2. OXALIPLATIN [Suspect]
     Indication: GASTRIC CANCER
     Dosage: IV DRIP FOR 2 HOURS ON DAY 1 OF EVERY 3 WEEK CYCLE
     Route: 041

REACTIONS (1)
  - DISEASE PROGRESSION [None]
